FAERS Safety Report 12871838 (Version 7)
Quarter: 2021Q3

REPORT INFORMATION
  Report Type: Spontaneous
  Country: US (occurrence: US)
  Receive Date: 20161021
  Receipt Date: 20210723
  Transmission Date: 20211014
  Serious: Yes (Hospitalization, Other)
  Sender: FDA-Public Use
  Company Number: US-NAPPMUNDI-USA-2016-0131959

PATIENT
  Sex: Female

DRUGS (9)
  1. COCAINE [Suspect]
     Active Substance: COCAINE
     Indication: DRUG ABUSE
     Dosage: UNK
     Route: 065
  2. HEROIN [Suspect]
     Active Substance: DIAMORPHINE
     Indication: PRODUCT USED FOR UNKNOWN INDICATION
     Route: 065
  3. METHAMPHETAMINE [Suspect]
     Active Substance: METHAMPHETAMINE
     Indication: PRODUCT USED FOR UNKNOWN INDICATION
     Dosage: UNK
     Route: 065
     Dates: start: 201807
  4. OXYCONTIN [Suspect]
     Active Substance: OXYCODONE HYDROCHLORIDE
     Indication: DRUG ABUSE
     Dosage: UNK
     Route: 055
  5. ALCOHOL. [Suspect]
     Active Substance: ALCOHOL
     Indication: DRUG ABUSE
     Dosage: UNK
     Route: 065
  6. OXYCONTIN [Suspect]
     Active Substance: OXYCODONE HYDROCHLORIDE
     Dosage: UNK
     Route: 048
  7. OXYCODONE HYDROCHLORIDE (SIMILAR TO NDA 22?272) [Suspect]
     Active Substance: OXYCODONE HYDROCHLORIDE
     Indication: DRUG ABUSE
     Dosage: UNK
     Route: 055
  8. FENTANYL. [Suspect]
     Active Substance: FENTANYL
     Indication: DRUG ABUSE
     Dosage: UNK
     Route: 055
  9. MARIJUANA [Suspect]
     Active Substance: CANNABIS SATIVA SUBSP. INDICA TOP
     Indication: PRODUCT USED FOR UNKNOWN INDICATION
     Route: 065

REACTIONS (20)
  - Overdose [Recovering/Resolving]
  - Pneumonia [Unknown]
  - Asphyxia [Unknown]
  - Cerebrovascular accident [Unknown]
  - Nausea [Unknown]
  - Multiple organ dysfunction syndrome [Unknown]
  - Substance abuse [Recovering/Resolving]
  - Loss of consciousness [Recovered/Resolved]
  - Brain injury [Unknown]
  - Counterfeit product administered [Unknown]
  - Pyrexia [Unknown]
  - Visual field defect [Unknown]
  - Dyspnoea [Recovered/Resolved]
  - Unevaluable event [Unknown]
  - Cyanosis [Unknown]
  - Oxygen saturation decreased [Recovered/Resolved]
  - Vomiting [Recovered/Resolved]
  - Myocardial infarction [Unknown]
  - Unresponsive to stimuli [Recovered/Resolved]
  - Substance dependence [Recovering/Resolving]

NARRATIVE: CASE EVENT DATE: 20180724
